FAERS Safety Report 21921168 (Version 1)
Quarter: 2023Q1

REPORT INFORMATION
  Report Type: Spontaneous
  Country: US (occurrence: None)
  Receive Date: 20230127
  Receipt Date: 20230127
  Transmission Date: 20230418
  Serious: Yes (Disabling)
  Sender: FDA-Public Use
  Company Number: None

PATIENT
  Age: 58 Year
  Sex: Male
  Weight: 69.75 kg

DRUGS (1)
  1. BASIC CARE ALLERGY RELIEF NASAL [Suspect]
     Active Substance: FLUTICASONE PROPIONATE
     Indication: Multiple allergies
     Dosage: OTHER QUANTITY : 1 SPRAY(S);?FREQUENCY : TWICE A DAY;?
     Route: 055
     Dates: start: 20220601, end: 20230126

REACTIONS (4)
  - Eye pain [None]
  - Vision blurred [None]
  - Diplopia [None]
  - Headache [None]

NARRATIVE: CASE EVENT DATE: 20221007
